FAERS Safety Report 7562173-1 (Version None)
Quarter: 2011Q2

REPORT INFORMATION
  Report Type: 
  Country: None (occurrence: None)
  Receive Date: 20110614
  Receipt Date: 20110601
  Transmission Date: 20111010
  Serious: Yes (Death, Hospitalization, Congenital Anomaly)
  Sender: FDA-Public Use
  Company Number: 2011MA006657

PATIENT
  Age: 27 Year
  Sex: Female

DRUGS (3)
  1. CLONAZEPAM [Suspect]
     Indication: JUVENILE MYOCLONIC EPILEPSY
     Dosage: 0.5 MG
  2. LAMOTRIGINE [Concomitant]
  3. FOLIC ACID [Concomitant]

REACTIONS (11)
  - INTRA-UTERINE DEATH [None]
  - HYDROPS FOETALIS [None]
  - MULTIPLE CONGENITAL ABNORMALITIES [None]
  - PLEURAL EFFUSION [None]
  - FOETAL HEART RATE ABNORMAL [None]
  - STILLBIRTH [None]
  - FOETAL HYPOKINESIA [None]
  - MATERNAL DRUGS AFFECTING FOETUS [None]
  - POLYDACTYLY [None]
  - CONGENITAL CARDIOVASCULAR ANOMALY [None]
  - NEONATAL ASPIRATION [None]
